FAERS Safety Report 9703793 (Version 1)
Quarter: 2013Q4

REPORT INFORMATION
  Report Type: Spontaneous
  Country: US (occurrence: None)
  Receive Date: 20131121
  Receipt Date: 20131121
  Transmission Date: 20140711
  Serious: Yes (Hospitalization)
  Sender: FDA-Public Use
  Company Number: None

PATIENT
  Age: 64 Year
  Sex: Male
  Weight: 137.6 kg

DRUGS (2)
  1. CHLORDIAZEPOXIDE [Suspect]
     Indication: ALCOHOL WITHDRAWAL SYNDROME
     Route: 048
     Dates: start: 20130927, end: 20131004
  2. OXYCODONE [Suspect]
     Indication: PAIN
     Route: 048
     Dates: start: 20131002

REACTIONS (9)
  - Upper limb fracture [None]
  - Fall [None]
  - Mental status changes [None]
  - Dysarthria [None]
  - Gait disturbance [None]
  - Somnolence [None]
  - Confusional state [None]
  - Dizziness [None]
  - Sedation [None]
